FAERS Safety Report 14263392 (Version 1)
Quarter: 2017Q4

REPORT INFORMATION
  Report Type: Spontaneous
  Country: US (occurrence: US)
  Receive Date: 20171208
  Receipt Date: 20171208
  Transmission Date: 20180321
  Serious: Yes (Hospitalization)
  Sender: FDA-Public Use
  Company Number: US-PFIZER INC-2017522804

PATIENT
  Age: 66 Year
  Sex: Male

DRUGS (1)
  1. NEURONTIN [Suspect]
     Active Substance: GABAPENTIN
     Indication: HYPOAESTHESIA
     Dosage: UNK

REACTIONS (3)
  - Pain [Unknown]
  - Drug intolerance [Unknown]
  - Product use in unapproved indication [Unknown]
